FAERS Safety Report 6251287-4 (Version None)
Quarter: 2009Q2

REPORT INFORMATION
  Report Type: 
  Country: None (occurrence: None)
  Receive Date: 20090630
  Receipt Date: 20090620
  Transmission Date: 20091009
  Serious: Yes (Hospitalization, Other)
  Sender: FDA-Public Use
  Company Number: PHHY2009BR24903

PATIENT
  Sex: Female

DRUGS (15)
  1. ENABLEX [Suspect]
     Indication: POLLAKIURIA
     Dosage: 15 MG, QD, AT 6 PM
     Route: 048
     Dates: end: 20090301
  2. CLORANA [Concomitant]
     Indication: HYPERTENSION
     Dosage: 20 MG, QD, IN THE MORNING
     Route: 048
  3. NATRILIX [Concomitant]
     Indication: HYPERTENSION
     Dosage: 1 DF, QD, IN THE MORNING
     Route: 048
  4. ALDOMET [Concomitant]
     Indication: HYPERTENSION
     Dosage: 500 MG, TID
     Route: 048
  5. NORVASC [Concomitant]
     Indication: HYPERTENSION
     Dosage: 20 MG, QD, IN THE MORNING
     Route: 048
  6. ENALAPRIL [Concomitant]
     Indication: HYPERTENSION
     Dosage: 10 MG, BID (1 TABLET IN THE MORNING AND 1 TABLET IN THE EVENING)
     Route: 048
  7. DIOVAN [Concomitant]
     Indication: HYPERTENSION
     Dosage: 320 MG, QD, IN THE MORNING
     Route: 048
     Dates: start: 20070601
  8. PURAN T4 [Concomitant]
     Indication: THYROID DISORDER
     Dosage: ONE TABLET DAILY IN FASTING
     Route: 048
  9. SIMVASTATIN [Concomitant]
     Indication: BLOOD CHOLESTEROL INCREASED
     Dosage: 20 MG, QD AT NIGHT DAILY
     Route: 048
     Dates: start: 20070601
  10. SIMVASTATIN [Concomitant]
     Indication: BLOOD TRIGLYCERIDES INCREASED
  11. AAS [Concomitant]
     Indication: ANTICOAGULANT THERAPY
     Dosage: 1 DF, QD AFTER LUNCH
     Route: 048
  12. METFORMIN (GLIFAGE XR) [Concomitant]
     Indication: DIABETES MELLITUS
     Dosage: 500MG, 1 TABLET IN THE MORNING AND 2 TABLET IN THE NIGHT
     Route: 048
  13. TOFRANIL [Concomitant]
     Indication: INSOMNIA
     Dosage: HALF TABLET (25MG) AT NIGHT
     Route: 048
  14. CLONAZEPAM [Concomitant]
     Indication: INSOMNIA
     Dosage: 2 MG, QD, AT NIGHT
     Route: 048
  15. OMEPRAZOLE [Concomitant]
     Indication: ULCER
     Dosage: 20 MG, QD, INTHE MORNING IN THE FASTING
     Route: 048

REACTIONS (4)
  - BLOOD PRESSURE FLUCTUATION [None]
  - BLOOD PRESSURE INCREASED [None]
  - HEADACHE [None]
  - NASOPHARYNGITIS [None]
